FAERS Safety Report 23731344 (Version 2)
Quarter: 2024Q2

REPORT INFORMATION
  Report Type: Report from Study
  Country: GR (occurrence: GR)
  Receive Date: 20240411
  Receipt Date: 20240423
  Transmission Date: 20240716
  Serious: Yes (Hospitalization)
  Sender: FDA-Public Use
  Company Number: GR-SA-SAC20240408000012

PATIENT
  Age: 42 Year
  Sex: Female
  Weight: 62 kg

DRUGS (2)
  1. ALEMTUZUMAB [Suspect]
     Active Substance: ALEMTUZUMAB
     Indication: Relapsing multiple sclerosis
     Dosage: 12 MG, QD
     Route: 041
     Dates: start: 20180205, end: 20180209
  2. ALEMTUZUMAB [Suspect]
     Active Substance: ALEMTUZUMAB
     Dosage: 12 MG, QD
     Route: 041
     Dates: start: 20190218, end: 20190220

REACTIONS (1)
  - Hemiparesis [Recovered/Resolved]

NARRATIVE: CASE EVENT DATE: 20230501
